FAERS Safety Report 6440200-2 (Version None)
Quarter: 2009Q4

REPORT INFORMATION
  Report Type: 
  Country: None (occurrence: None)
  Receive Date: 20091113
  Receipt Date: 20090827
  Transmission Date: 20100525
  Serious: No
  Sender: FDA-Public Use
  Company Number: A0804159A

PATIENT
  Age: 71 Year
  Sex: Male

DRUGS (1)
  1. COREG [Suspect]
     Dosage: 12.5MG UNKNOWN
     Route: 048

REACTIONS (5)
  - BALANCE DISORDER [None]
  - DIZZINESS [None]
  - DRUG INTOLERANCE [None]
  - HYPOTENSION [None]
  - INSOMNIA [None]
